FAERS Safety Report 12202778 (Version 20)
Quarter: 2016Q4

REPORT INFORMATION
  Report Type: Report from Study
  Country: CA (occurrence: CA)
  Receive Date: 20160323
  Receipt Date: 20161206
  Transmission Date: 20170207
  Serious: Yes (Other)
  Sender: FDA-Public Use
  Company Number: CA-ROCHE-1727314

PATIENT
  Age: 56 Year
  Sex: Female

DRUGS (10)
  1. AVASTIN [Suspect]
     Active Substance: BEVACIZUMAB
     Indication: SQUAMOUS CELL CARCINOMA OF THE CERVIX
     Route: 042
     Dates: start: 20160225
  2. SYNTHROID [Concomitant]
     Active Substance: LEVOTHYROXINE SODIUM
  3. TYLENOL [Concomitant]
     Active Substance: ACETAMINOPHEN
     Route: 048
     Dates: start: 20160324, end: 20160324
  4. TYLENOL [Concomitant]
     Active Substance: ACETAMINOPHEN
     Indication: PREMEDICATION
     Route: 048
     Dates: start: 20160225, end: 20160225
  5. TYLENOL [Concomitant]
     Active Substance: ACETAMINOPHEN
     Route: 048
     Dates: start: 20160414, end: 20160414
  6. AVASTIN [Suspect]
     Active Substance: BEVACIZUMAB
     Route: 042
     Dates: start: 20160804, end: 20161110
  7. PANTOPRAZOLE [Concomitant]
     Active Substance: PANTOPRAZOLE SODIUM
  8. BENADRYL [Concomitant]
     Active Substance: DIPHENHYDRAMINE HYDROCHLORIDE
     Indication: PREMEDICATION
     Route: 048
     Dates: start: 20160225
  9. NAPROXEN. [Concomitant]
     Active Substance: NAPROXEN
  10. TYLENOL [Concomitant]
     Active Substance: ACETAMINOPHEN
     Route: 048
     Dates: start: 20160505

REACTIONS (36)
  - Blood chloride decreased [Not Recovered/Not Resolved]
  - Platelet count increased [Recovered/Resolved]
  - Nausea [Unknown]
  - Peripheral swelling [Not Recovered/Not Resolved]
  - Red cell distribution width increased [Not Recovered/Not Resolved]
  - Lymphocyte percentage decreased [Not Recovered/Not Resolved]
  - Blood thyroid stimulating hormone increased [Recovered/Resolved]
  - Glomerular filtration rate decreased [Unknown]
  - Haemoglobin decreased [Not Recovered/Not Resolved]
  - Lymphocyte count decreased [Not Recovered/Not Resolved]
  - Monocyte count increased [Recovered/Resolved]
  - Red cell distribution width decreased [Unknown]
  - Poor venous access [Unknown]
  - Injection site swelling [Not Recovered/Not Resolved]
  - White blood cell count decreased [Recovered/Resolved]
  - Neutrophil count increased [Unknown]
  - Thyroglobulin decreased [Unknown]
  - Contusion [Not Recovered/Not Resolved]
  - Mean cell volume increased [Recovering/Resolving]
  - Mean platelet volume decreased [Not Recovered/Not Resolved]
  - Thrombosis [Not Recovered/Not Resolved]
  - Red blood cell count decreased [Not Recovered/Not Resolved]
  - Monocyte percentage increased [Unknown]
  - Blood magnesium decreased [Recovered/Resolved]
  - Carbohydrate antigen 125 increased [Not Recovered/Not Resolved]
  - Drug ineffective [Unknown]
  - Blood bicarbonate decreased [Unknown]
  - Device occlusion [Unknown]
  - Neutrophil count decreased [Recovered/Resolved]
  - Haematocrit decreased [Not Recovered/Not Resolved]
  - Mean cell haemoglobin concentration decreased [Unknown]
  - Blood pressure increased [Unknown]
  - Aspartate aminotransferase decreased [Unknown]
  - Hyperlipidaemia [Not Recovered/Not Resolved]
  - Platelet count decreased [Unknown]
  - Body temperature decreased [Unknown]

NARRATIVE: CASE EVENT DATE: 20160317
